FAERS Safety Report 10450029 (Version 1)
Quarter: 2014Q3

REPORT INFORMATION
  Report Type: Spontaneous
  Country: IT (occurrence: IT)
  Receive Date: 20140912
  Receipt Date: 20140912
  Transmission Date: 20150326
  Serious: Yes (Hospitalization)
  Sender: FDA-Public Use
  Company Number: IT-WATSON-2014-19661

PATIENT
  Age: 47 Year
  Sex: Male

DRUGS (3)
  1. FLURAZEPAM [Suspect]
     Active Substance: FLURAZEPAM\FLURAZEPAM HYDROCHLORIDE
     Indication: PRODUCT USED FOR UNKNOWN INDICATION
     Dosage: 29 DF, TOTAL
     Route: 048
     Dates: start: 20140816, end: 20140816
  2. XANAX [Suspect]
     Active Substance: ALPRAZOLAM
     Indication: PRODUCT USED FOR UNKNOWN INDICATION
     Dosage: 28 DF, TOTAL
     Route: 048
     Dates: start: 20140816, end: 20140816
  3. LORAZEPAM (UNKNOWN) [Suspect]
     Active Substance: LORAZEPAM
     Indication: PRODUCT USED FOR UNKNOWN INDICATION
     Dosage: 15 ML, TOTAL
     Route: 048
     Dates: start: 20140816, end: 20140816

REACTIONS (3)
  - Bradykinesia [Recovering/Resolving]
  - Intentional overdose [Recovering/Resolving]
  - Bradyphrenia [Recovering/Resolving]

NARRATIVE: CASE EVENT DATE: 20140816
